FAERS Safety Report 5410844-5 (Version None)
Quarter: 2007Q3

REPORT INFORMATION
  Report Type: 
  Country: None (occurrence: None)
  Receive Date: 20070810
  Receipt Date: 20070731
  Transmission Date: 20080115
  Serious: Yes (Other)
  Sender: FDA-Public Use
  Company Number: US-JNJFOC-20070800511

PATIENT
  Sex: Female

DRUGS (10)
  1. DURAGESIC-100 [Suspect]
     Route: 062
  2. DURAGESIC-100 [Suspect]
     Indication: PAIN
     Route: 062
  3. PROMETHAZINE [Concomitant]
     Indication: NAUSEA
     Dosage: DAILY AS NEEDED
     Route: 048
  4. PREVACID [Concomitant]
     Indication: GASTROOESOPHAGEAL REFLUX DISEASE
     Route: 048
  5. MAXALT [Concomitant]
     Indication: MIGRAINE
     Dosage: DAILY AS NEEDED
     Route: 060
  6. VITAMIN B-12 [Concomitant]
     Indication: ANAEMIA
     Route: 050
  7. VITAMIN B-12 [Concomitant]
     Indication: FATIGUE
     Route: 050
  8. NEURONTIN [Concomitant]
     Indication: NEURALGIA
     Dosage: DAILY
     Route: 048
  9. UNKNOWN PAIN MEDICATION [Concomitant]
     Indication: BREAKTHROUGH PAIN
     Route: 048
  10. PERCOCET [Concomitant]
     Indication: BREAKTHROUGH PAIN
     Dosage: DAILY AS NEEDED
     Route: 048

REACTIONS (13)
  - ASTHENIA [None]
  - COGNITIVE DISORDER [None]
  - CONSTIPATION [None]
  - DRUG WITHDRAWAL SYNDROME [None]
  - FALL [None]
  - FUNGAL SKIN INFECTION [None]
  - HYPERHIDROSIS [None]
  - HYPERSOMNIA [None]
  - INAPPROPRIATE SCHEDULE OF DRUG ADMINISTRATION [None]
  - INSOMNIA [None]
  - NIGHT SWEATS [None]
  - PAIN [None]
  - RESORPTION BONE INCREASED [None]
